FAERS Safety Report 14985418 (Version 2)
Quarter: 2018Q4

REPORT INFORMATION
  Report Type: Spontaneous
  Country: US (occurrence: US)
  Receive Date: 20180607
  Receipt Date: 20181214
  Transmission Date: 20190204
  Serious: Yes (Hospitalization, Other)
  Sender: FDA-Public Use
  Company Number: US-PFIZER INC-2018233170

PATIENT
  Age: 78 Year
  Sex: Female
  Weight: 63.5 kg

DRUGS (12)
  1. FLONASE [Concomitant]
     Active Substance: FLUTICASONE PROPIONATE
     Dosage: TWO TIMES A DAY
     Route: 045
  2. IRON [Concomitant]
     Active Substance: IRON
     Indication: MULTI-VITAMIN DEFICIENCY
     Dosage: DAILY
     Route: 050
  3. TWOCAL HN [Concomitant]
     Active Substance: DIETARY SUPPLEMENT
     Indication: ADVERSE FOOD REACTION
     Dosage: FOUR TIMES A DAY
     Route: 050
  4. SIMVASTATIN. [Concomitant]
     Active Substance: SIMVASTATIN
     Dosage: 40 MG, 1X/DAY
     Route: 050
  5. NEXIUM [Suspect]
     Active Substance: ESOMEPRAZOLE MAGNESIUM
     Dosage: 40 MG, 1X/DAY
     Route: 048
  6. NEXIUM 24HR [Suspect]
     Active Substance: ESOMEPRAZOLE MAGNESIUM
     Dosage: DAILY
     Route: 048
  7. METOPROLOL TARTRATE. [Suspect]
     Active Substance: METOPROLOL TARTRATE
     Indication: BLOOD PRESSURE MEASUREMENT
     Dosage: 100 MG, 2X/DAY
     Route: 048
  8. RESTASIS [Concomitant]
     Active Substance: CYCLOSPORINE
     Dosage: TWO TIMES A DAY
     Route: 065
  9. CLONIDINE. [Concomitant]
     Active Substance: CLONIDINE
     Indication: BLOOD PRESSURE MEASUREMENT
     Dosage: UNKNOWN
     Route: 050
  10. VITAMIN C [Concomitant]
     Active Substance: ASCORBIC ACID
     Indication: MULTI-VITAMIN DEFICIENCY
     Dosage: DAILY
     Route: 050
  11. FOLIC ACID. [Concomitant]
     Active Substance: FOLIC ACID
     Indication: MULTI-VITAMIN DEFICIENCY
     Dosage: DAILY
     Route: 050
  12. FLORASTOR [Concomitant]
     Active Substance: SACCHAROMYCES CEREVISIAE
     Indication: PROPHYLAXIS
     Dosage: TWO TIMES A DAY
     Route: 050

REACTIONS (11)
  - Thyroid function test abnormal [Unknown]
  - Gastrooesophageal reflux disease [Unknown]
  - Pneumonia aspiration [Unknown]
  - Sjogren^s syndrome [Unknown]
  - Body height decreased [Not Recovered/Not Resolved]
  - Hiatus hernia [Unknown]
  - Pleural effusion [Unknown]
  - Posture abnormal [Not Recovered/Not Resolved]
  - Infection [Unknown]
  - Circumstance or information capable of leading to medication error [Recovered/Resolved]
  - Arthritis [Not Recovered/Not Resolved]
